FAERS Safety Report 7130305-5 (Version None)
Quarter: 2010Q4

REPORT INFORMATION
  Report Type: 
  Country: None (occurrence: None)
  Receive Date: 20101116
  Receipt Date: 20101027
  Transmission Date: 20110411
  Serious: Yes (Other)
  Sender: FDA-Public Use
  Company Number: GER/UKI/10/0016496

PATIENT
  Age: 83 Year
  Sex: Female

DRUGS (7)
  1. OMEPRAZOLE [Suspect]
     Indication: DYSPEPSIA
     Dosage: 20 MG, ORAL
     Route: 048
     Dates: end: 20101017
  2. CITALOPRAM (CITALOPRAM) [Suspect]
     Indication: ANXIETY
     Dosage: 10 MG, ORAL
     Route: 048
  3. FLECAINIDE ACETATE [Concomitant]
  4. BENDROFLUMETHIAZIDE (BENDROFLUMETHIAZIDE) [Concomitant]
  5. CIPROFLOXACIN [Concomitant]
  6. MOVICOL (NULYTELY /01053601/) [Concomitant]
  7. ZOPICLONE (ZOPICLONE) [Concomitant]

REACTIONS (4)
  - ANGIOEDEMA [None]
  - ANXIETY [None]
  - DRUG INTERACTION [None]
  - DYSPEPSIA [None]
